FAERS Safety Report 4618244-2 (Version None)
Quarter: 2005Q1

REPORT INFORMATION
  Report Type: 
  Country: None (occurrence: None)
  Receive Date: 20050324
  Receipt Date: 20050314
  Transmission Date: 20050727
  Serious: Yes (Other)
  Sender: FDA-Public Use
  Company Number: GB-ABBOTT-05P-167-0294061-00

PATIENT
  Sex: Female
  Weight: 82.55 kg

DRUGS (1)
  1. CLARITHROMYCIN [Suspect]
     Indication: BRONCHITIS
     Route: 048
     Dates: start: 20050222, end: 20050222

REACTIONS (2)
  - CONFUSIONAL STATE [None]
  - MYDRIASIS [None]
